FAERS Safety Report 21053838 (Version 2)
Quarter: 2022Q3

REPORT INFORMATION
  Report Type: Spontaneous
  Country: US (occurrence: US)
  Receive Date: 20220707
  Receipt Date: 20220809
  Transmission Date: 20221027
  Serious: Yes (Hospitalization)
  Sender: FDA-Public Use
  Company Number: US-ELI_LILLY_AND_COMPANY-US202207000438

PATIENT
  Sex: Female
  Weight: 91.2 kg

DRUGS (6)
  1. ADCIRCA [Suspect]
     Active Substance: TADALAFIL
     Indication: Product used for unknown indication
     Dosage: UNK, UNKNOWN
     Route: 065
  2. AMBRISENTAN [Suspect]
     Active Substance: AMBRISENTAN
     Indication: Pulmonary arterial hypertension
     Dosage: 10 MG, DAILY
     Route: 065
     Dates: start: 20191011
  3. REMODULIN [Suspect]
     Active Substance: TREPROSTINIL
     Indication: Pulmonary arterial hypertension
     Dosage: 0.087 UG/KG, CONTINUOUS
     Route: 058
     Dates: start: 20110901
  4. REMODULIN [Suspect]
     Active Substance: TREPROSTINIL
     Dosage: 0.048 ML/H, 10 MIN
     Route: 058
     Dates: start: 20110901
  5. REMODULIN [Suspect]
     Active Substance: TREPROSTINIL
     Dosage: 0.038 ML/H 10 MIN
     Route: 058
     Dates: start: 20110901
  6. REMODULIN [Suspect]
     Active Substance: TREPROSTINIL
     Dosage: 0.044 ML/H 10 MIN
     Route: 058
     Dates: start: 20110901

REACTIONS (5)
  - Fluid retention [Unknown]
  - Heart rate increased [Unknown]
  - Flushing [Unknown]
  - Gastrooesophageal reflux disease [Unknown]
  - Headache [Unknown]
